FAERS Safety Report 10455191 (Version 2)
Quarter: 2014Q4

REPORT INFORMATION
  Report Type: Spontaneous
  Country: CA (occurrence: CA)
  Receive Date: 20140916
  Receipt Date: 20141226
  Transmission Date: 20150528
  Serious: Yes (Hospitalization)
  Sender: FDA-Public Use
  Company Number: CA-ROCHE-1460612

PATIENT
  Age: 50 Year
  Sex: Female

DRUGS (12)
  1. SYNTHROID [Concomitant]
     Active Substance: LEVOTHYROXINE SODIUM
  2. NEXIUM [Concomitant]
     Active Substance: ESOMEPRAZOLE MAGNESIUM
  3. PLAQUENIL [Concomitant]
     Active Substance: HYDROXYCHLOROQUINE SULFATE
     Route: 065
  4. VITAMIN B COMPLEX [Concomitant]
     Active Substance: CYANOCOBALAMIN\DEXPANTHENOL\NIACINAMIDE\PYRIDOXINE HYDROCHLORIDE\RIBOFLAVIN 5^-PHOSPHATE SODIUM\THIAMINE HYDROCHLORIDE\VITAMIN B COMPLEX
  5. BENLYSTA [Suspect]
     Active Substance: BELIMUMAB
     Route: 042
  6. BENLYSTA [Suspect]
     Active Substance: BELIMUMAB
     Route: 042
  7. LEVOFLOXACIN. [Suspect]
     Active Substance: LEVOFLOXACIN
     Indication: PRODUCT USED FOR UNKNOWN INDICATION
     Route: 048
  8. GABAPENTIN. [Concomitant]
     Active Substance: GABAPENTIN
  9. MORPHINE SR [Concomitant]
     Active Substance: MORPHINE
     Route: 065
  10. NAPROXEN SODIUM. [Suspect]
     Active Substance: NAPROXEN SODIUM
     Indication: SYSTEMIC LUPUS ERYTHEMATOSUS
     Route: 065
  11. BENLYSTA [Suspect]
     Active Substance: BELIMUMAB
     Indication: SYSTEMIC LUPUS ERYTHEMATOSUS
     Dosage: DOSE: 3 DOSAGE FORMS
     Route: 042
  12. TESTOSTERONE. [Concomitant]
     Active Substance: TESTOSTERONE

REACTIONS (32)
  - Arthralgia [Unknown]
  - Bladder pain [Unknown]
  - Decreased appetite [Unknown]
  - Drug ineffective [Unknown]
  - Fatigue [Unknown]
  - Hypertension [Unknown]
  - Pain in extremity [Unknown]
  - Joint swelling [Unknown]
  - Presyncope [Unknown]
  - Dyspnoea [Unknown]
  - Feeling abnormal [Unknown]
  - Movement disorder [Unknown]
  - Tinnitus [Unknown]
  - Blood pressure increased [Unknown]
  - Chest discomfort [Unknown]
  - Musculoskeletal discomfort [Unknown]
  - Pyrexia [Unknown]
  - Urticaria [Unknown]
  - Oropharyngeal pain [Unknown]
  - Asthenia [Unknown]
  - Discomfort [Unknown]
  - Dizziness [Unknown]
  - Systemic lupus erythematosus [Unknown]
  - Pallor [Unknown]
  - Local swelling [Unknown]
  - Pruritus [Unknown]
  - Ill-defined disorder [Unknown]
  - Chills [Unknown]
  - Palpitations [Unknown]
  - Pneumonia [Unknown]
  - Uterine pain [Unknown]
  - Asthma [Unknown]
